FAERS Safety Report 8964250 (Version 1)
Quarter: 2012Q4

REPORT INFORMATION
  Report Type: 
  Country: US (occurrence: US)
  Receive Date: 20121213
  Receipt Date: 20121213
  Transmission Date: 20130627
  Serious: No
  Sender: FDA-Public Use
  Company Number: US-009507513-1212USA002946

PATIENT
  Age: 53 Year
  Sex: Male

DRUGS (4)
  1. VICTRELIS [Suspect]
     Dosage: UNK
     Dates: start: 20121029
  2. PEGINTRON [Suspect]
     Dosage: 150 Microgram, UNK
     Dates: start: 20121001
  3. RIBAVIRIN [Suspect]
  4. RIBAVIRIN [Suspect]

REACTIONS (3)
  - Asthenia [Unknown]
  - Tremor [Unknown]
  - Dizziness [Unknown]
